FAERS Safety Report 19657099 (Version 1)
Quarter: 2021Q3

REPORT INFORMATION
  Report Type: Report from Study
  Country: ES (occurrence: ES)
  Receive Date: 20210804
  Receipt Date: 20210804
  Transmission Date: 20211014
  Serious: Yes (Death, Hospitalization)
  Sender: FDA-Public Use
  Company Number: ES-PFIZER INC-202100939536

PATIENT
  Age: 74 Year
  Sex: Male

DRUGS (5)
  1. HYDROXYCHLOROQUINE [HYDROXYCHLOROQUINE SULFATE] [Suspect]
     Active Substance: HYDROXYCHLOROQUINE SULFATE
     Indication: COVID-19
     Dosage: 3.2 G, SINGLE
     Route: 048
     Dates: start: 20200324, end: 20200331
  2. LOPINAVIR + RITONAVIR [Suspect]
     Active Substance: LOPINAVIR\RITONAVIR
     Indication: COVID-19
     Dosage: 800 MG, 1X/DAY
     Route: 048
     Dates: start: 20200331, end: 20200331
  3. ENOXAPARIN [ENOXAPARIN SODIUM] [Suspect]
     Active Substance: ENOXAPARIN SODIUM
     Dosage: 80 MG, 1X/DAY
     Route: 058
     Dates: start: 20200328, end: 20200331
  4. METHYLPREDNISOLONE SODIUM SUCCINATE. [Suspect]
     Active Substance: METHYLPREDNISOLONE SODIUM SUCCINATE
     Dosage: 160 MG, 1X/DAY
     Route: 042
     Dates: start: 20200327, end: 20200331
  5. TOCILIZUMAB. [Suspect]
     Active Substance: TOCILIZUMAB
     Indication: COVID-19
     Dosage: 560 MG, SINGLE
     Route: 042
     Dates: start: 20200328, end: 20200328

REACTIONS (1)
  - Hepatic cytolysis [Recovered/Resolved]

NARRATIVE: CASE EVENT DATE: 20200401
